FAERS Safety Report 18727021 (Version 1)
Quarter: 2021Q1

REPORT INFORMATION
  Report Type: Report from Study
  Country: PL (occurrence: PL)
  Receive Date: 20210111
  Receipt Date: 20210111
  Transmission Date: 20210419
  Serious: Yes (Hospitalization, Disabling)
  Sender: FDA-Public Use
  Company Number: PL-TAKEDA-2020TUS061606

PATIENT
  Sex: Male

DRUGS (1)
  1. VELAGLUCERASE ALFA [Suspect]
     Active Substance: VELAGLUCERASE ALFA
     Indication: GAUCHER^S DISEASE
     Route: 042

REACTIONS (3)
  - Injury [Recovered/Resolved]
  - Femoral neck fracture [Recovered/Resolved]
  - Arteriosclerosis [Recovering/Resolving]

NARRATIVE: CASE EVENT DATE: 10181016
